FAERS Safety Report 8301036-0 (Version None)
Quarter: 2012Q2

REPORT INFORMATION
  Report Type: 
  Country: None (occurrence: None)
  Receive Date: 20120420
  Receipt Date: 20120412
  Transmission Date: 20120825
  Serious: Yes (Other)
  Sender: FDA-Public Use
  Company Number: GB-ASTRAZENECA-2012SE24267

PATIENT
  Age: 72 Year
  Sex: Female

DRUGS (10)
  1. VANDETANIB [Suspect]
     Indication: THYROID CANCER
     Route: 048
     Dates: start: 20110906, end: 20110919
  2. CALCICHEW D3 [Concomitant]
     Indication: HORMONE REPLACEMENT THERAPY
     Route: 048
  3. ACETAMINOPHEN [Concomitant]
     Indication: DISCOMFORT
     Route: 048
  4. VITAMIN B COMPLEX CAP [Concomitant]
     Indication: VITAMIN SUPPLEMENTATION
     Route: 048
  5. AMLODIPINE [Concomitant]
     Route: 048
     Dates: start: 20110926
  6. LOPERAMIDE [Concomitant]
     Indication: DIARRHOEA
     Route: 048
  7. AMLODIPINE [Concomitant]
     Indication: HYPERTENSION
     Route: 048
     Dates: start: 20110919, end: 20110925
  8. ALDONIC ACID [Concomitant]
     Indication: BONE DISORDER
     Route: 048
  9. VANDETANIB [Suspect]
     Route: 048
     Dates: start: 20111004, end: 20120412
  10. LEVOTHYROXINE SODIUM [Concomitant]
     Indication: THYROIDECTOMY
     Route: 048

REACTIONS (1)
  - HAEMATOCRIT INCREASED [None]
